FAERS Safety Report 13365328 (Version 1)
Quarter: 2017Q1

REPORT INFORMATION
  Report Type: Spontaneous
  Country: US (occurrence: US)
  Receive Date: 20170323
  Receipt Date: 20170323
  Transmission Date: 20170429
  Serious: No
  Sender: FDA-Public Use
  Company Number: US-ALLERGAN-2017-000072

PATIENT
  Age: 50 Year
  Sex: Female
  Weight: 46.71 kg

DRUGS (4)
  1. ESTRACE [Suspect]
     Active Substance: ESTRADIOL
     Indication: VULVAR DYSPLASIA
     Dosage: TOPICALLY TO PERINEAL REGION
     Route: 061
     Dates: start: 2016
  2. ESTRACE [Suspect]
     Active Substance: ESTRADIOL
     Indication: VULVOVAGINAL DRYNESS
  3. ESTRACE [Suspect]
     Active Substance: ESTRADIOL
     Indication: DYSPAREUNIA
  4. ESTRACE [Suspect]
     Active Substance: ESTRADIOL
     Indication: MENOPAUSE

REACTIONS (7)
  - Fungal infection [Unknown]
  - Breast swelling [Not Recovered/Not Resolved]
  - Product use issue [Unknown]
  - Metrorrhagia [Not Recovered/Not Resolved]
  - Wrong technique in product usage process [Unknown]
  - Drug prescribing error [Unknown]
  - Breast tenderness [Not Recovered/Not Resolved]

NARRATIVE: CASE EVENT DATE: 2016
